FAERS Safety Report 7912078-9 (Version None)
Quarter: 2011Q4

REPORT INFORMATION
  Report Type: 
  Country: None (occurrence: None)
  Receive Date: 20111114
  Receipt Date: 20111102
  Transmission Date: 20120403
  Serious: Yes (Disabling)
  Sender: FDA-Public Use
  Company Number: GB-TEVA-304275ISR

PATIENT
  Age: 67 Year
  Weight: 57 kg

DRUGS (6)
  1. BECLOMETHASONE DIPROPIONATE [Concomitant]
  2. ALENDRONIC ACID [Suspect]
     Indication: OSTEOPOROSIS
     Route: 048
     Dates: start: 20110117
  3. FLUOXETINE HCL [Concomitant]
  4. EPROSARTAN [Concomitant]
  5. AMLODIPINE [Concomitant]
  6. CALCIUM AND VITAMIN D [Concomitant]

REACTIONS (1)
  - MICTURITION URGENCY [None]
